FAERS Safety Report 5104360-8 (Version None)
Quarter: 2006Q3

REPORT INFORMATION
  Report Type: 
  Country: None (occurrence: None)
  Receive Date: 20060911
  Receipt Date: 20060911
  Transmission Date: 20061208
  Serious: Yes (Hospitalization)
  Sender: FDA-Public Use
  Company Number: None

PATIENT
  Age: 70 Year
  Sex: Male
  Weight: 58.514 kg

DRUGS (2)
  1. SIMVASTATIN [Suspect]
     Indication: HYPERLIPIDAEMIA
     Dosage: 40 MG   ONCE DAILY   PO
     Route: 048
     Dates: start: 20051222, end: 20060619
  2. GEMFIBROZIL [Suspect]
     Indication: HYPERLIPIDAEMIA
     Dosage: 600 MG    TWICE DAILY   PO
     Route: 048
     Dates: start: 20060211, end: 20060619

REACTIONS (3)
  - CARDIAC FAILURE [None]
  - RHABDOMYOLYSIS [None]
  - WEIGHT DECREASED [None]
